FAERS Safety Report 7279931-3 (Version None)
Quarter: 2011Q1

REPORT INFORMATION
  Report Type: 
  Country: None (occurrence: None)
  Receive Date: 20110208
  Receipt Date: 20110131
  Transmission Date: 20110831
  Serious: Yes (Congenital Anomaly)
  Sender: FDA-Public Use
  Company Number: ZA-BAYER-2011-011075

PATIENT

DRUGS (1)
  1. MIRENA [Suspect]
     Route: 064

REACTIONS (1)
  - SPINA BIFIDA [None]
